FAERS Safety Report 25392731 (Version 2)
Quarter: 2025Q2

REPORT INFORMATION
  Report Type: Report from Study
  Country: US (occurrence: US)
  Receive Date: 20250603
  Receipt Date: 20250615
  Transmission Date: 20250716
  Serious: No
  Sender: ELI LILLY AND COMPANY
  Company Number: US-ELI_LILLY_AND_COMPANY-US202506002540

PATIENT
  Age: 73 Year
  Sex: Female

DRUGS (10)
  1. FORTEO [Suspect]
     Active Substance: TERIPARATIDE
     Indication: Product used for unknown indication
     Dosage: 0.08 ML, DAILY
     Route: 058
  2. FORTEO [Suspect]
     Active Substance: TERIPARATIDE
     Indication: Product used for unknown indication
     Dosage: 0.08 ML, DAILY
     Route: 058
  3. FORTEO [Suspect]
     Active Substance: TERIPARATIDE
     Indication: Product used for unknown indication
     Dosage: 0.08 ML, DAILY
     Route: 058
  4. FORTEO [Suspect]
     Active Substance: TERIPARATIDE
     Indication: Product used for unknown indication
     Dosage: 0.08 ML, DAILY
     Route: 058
  5. FORTEO [Suspect]
     Active Substance: TERIPARATIDE
     Route: 065
  6. FORTEO [Suspect]
     Active Substance: TERIPARATIDE
     Route: 065
  7. FORTEO [Suspect]
     Active Substance: TERIPARATIDE
     Route: 065
  8. FORTEO [Suspect]
     Active Substance: TERIPARATIDE
     Route: 065
  9. FORTEO [Suspect]
     Active Substance: TERIPARATIDE
     Route: 065
  10. FORTEO [Suspect]
     Active Substance: TERIPARATIDE
     Route: 065

REACTIONS (4)
  - Incorrect dose administered by device [Unknown]
  - Injection site haemorrhage [Unknown]
  - Injection site bruising [Recovered/Resolved]
  - Herpes zoster [Unknown]

NARRATIVE: CASE EVENT DATE: 20250506
